FAERS Safety Report 11417550 (Version 1)
Quarter: 2015Q3

REPORT INFORMATION
  Report Type: Spontaneous
  Country: US (occurrence: US)
  Receive Date: 20150825
  Receipt Date: 20150825
  Transmission Date: 20151125
  Serious: No
  Sender: FDA-Public Use
  Company Number: GXBR2015US001711

PATIENT
  Age: 3 Year
  Sex: Male

DRUGS (1)
  1. ZINC OXIDE. [Suspect]
     Active Substance: ZINC OXIDE
     Indication: PROPHYLAXIS
     Dosage: UNK DF, UNK
     Route: 061
     Dates: start: 20150716

REACTIONS (3)
  - Eye pruritus [Recovered/Resolved]
  - Accidental exposure to product [Recovered/Resolved]
  - Off label use [Recovered/Resolved]
